FAERS Safety Report 6940922-0 (Version None)
Quarter: 2010Q3

REPORT INFORMATION
  Report Type: 
  Country: None (occurrence: None)
  Receive Date: 20100825
  Receipt Date: 20100817
  Transmission Date: 20110219
  Serious: Yes (Hospitalization)
  Sender: FDA-Public Use
  Company Number: A0789329A

PATIENT
  Age: 56 Year
  Sex: Male
  Weight: 122.7 kg

DRUGS (8)
  1. AVANDIA [Suspect]
     Indication: DIABETES MELLITUS
     Dosage: 8MG PER DAY
     Route: 048
     Dates: start: 20010101, end: 20070601
  2. EFFEXOR [Concomitant]
  3. PROTONIX [Concomitant]
  4. LISINOPRIL [Concomitant]
  5. GLIMEPIRIDE [Concomitant]
  6. METFORMIN HCL [Concomitant]
  7. GEMFIBROZIL [Concomitant]
  8. CRESTOR [Concomitant]

REACTIONS (6)
  - CARDIAC FAILURE CONGESTIVE [None]
  - CORONARY ARTERY OCCLUSION [None]
  - CORONARY ARTERY STENOSIS [None]
  - MYOCARDIAL INFARCTION [None]
  - NAUSEA [None]
  - STENT PLACEMENT [None]
